FAERS Safety Report 4594378-6 (Version None)
Quarter: 2005Q1

REPORT INFORMATION
  Report Type: 
  Country: None (occurrence: None)
  Receive Date: 20050301
  Receipt Date: 20041213
  Transmission Date: 20050727
  Serious: No
  Sender: FDA-Public Use
  Company Number: US-GLAXOSMITHKLINE-A0537075A

PATIENT
  Age: 53 Year
  Sex: Female

DRUGS (2)
  1. VALTREX [Suspect]
     Dosage: 1G AS REQUIRED
     Route: 048
     Dates: start: 20031001
  2. LOMOTIL [Concomitant]

REACTIONS (3)
  - DRUG INEFFECTIVE [None]
  - VISION BLURRED [None]
  - VISUAL FIELD DEFECT [None]
